FAERS Safety Report 9120856 (Version 3)
Quarter: 2014Q2

REPORT INFORMATION
  Report Type: Spontaneous
  Country: US (occurrence: US)
  Receive Date: 20130226
  Receipt Date: 20140521
  Transmission Date: 20141212
  Serious: Yes (Other)
  Sender: FDA-Public Use
  Company Number: US-ALEXION-A201300283

PATIENT
  Sex: 0

DRUGS (3)
  1. SOLIRIS 300MG [Suspect]
     Indication: NEUROMYELITIS OPTICA
     Dosage: 600 MG, QW X 4
     Route: 042
  2. SOLIRIS 300MG [Suspect]
     Indication: OFF LABEL USE
     Dosage: 900 MG, SINGLE
     Route: 042
  3. SOLIRIS 300MG [Suspect]
     Dosage: 900 MG, Q2W
     Route: 042

REACTIONS (3)
  - Neuromyelitis optica [Unknown]
  - Condition aggravated [Unknown]
  - Back pain [Unknown]
